FAERS Safety Report 10234783 (Version 1)
Quarter: 2014Q2

REPORT INFORMATION
  Report Type: Spontaneous
  Country: US (occurrence: None)
  Receive Date: 20140509
  Receipt Date: 20140509
  Transmission Date: 20141212
  Serious: Yes (Other)
  Sender: FDA-Public Use
  Company Number: VISP-PR-1402S-0070

PATIENT
  Age: 81 Year
  Sex: Male
  Weight: 59.51 kg

DRUGS (10)
  1. VISIPAQUE (IODIXANOL) [Suspect]
     Indication: WEIGHT DECREASED
     Route: 042
  2. VISIPAQUE (IODIXANOL) [Suspect]
     Indication: DIAGNOSTIC PROCEDURE
     Route: 042
  3. WARFARIN (WARFARIN) [Concomitant]
  4. LISINOPRIL (LISINOPRIL) [Concomitant]
  5. TERAZOSIN (TERAZOSIN) (TERAZOSIN) [Concomitant]
  6. SIMVASTATIN (SIMVASTATIN) [Concomitant]
  7. LEVOTHYROXINE (LEVOTHYROXINE) [Concomitant]
  8. OMEPRAZOLE (OMEPRAZOLE) [Concomitant]
  9. MULTIVITAMIN (VITAMINS NOS) [Concomitant]
  10. ASPIRIN (ACETYLSALICYLIC ACID) [Concomitant]

REACTIONS (1)
  - Hypersensitivity [None]
